FAERS Safety Report 5169517-9 (Version None)
Quarter: 2006Q4

REPORT INFORMATION
  Report Type: 
  Country: None (occurrence: None)
  Receive Date: 20061204
  Receipt Date: 20061128
  Transmission Date: 20070319
  Serious: No
  Sender: FDA-Public Use
  Company Number: 2006S1000286

PATIENT
  Age: 55 Year
  Sex: Male

DRUGS (1)
  1. SORIATANE [Suspect]
     Indication: DRUG USE FOR UNKNOWN INDICATION
     Dosage: SEE  IMAGE, PO
     Route: 048

REACTIONS (2)
  - ACCIDENTAL OVERDOSE [None]
  - HEPATOTOXICITY [None]
